FAERS Safety Report 8599858 (Version 3)
Quarter: 2012Q4

REPORT INFORMATION
  Report Type: 
  Country: JP (occurrence: JP)
  Receive Date: 20120605
  Receipt Date: 20121031
  Transmission Date: 20130627
  Serious: No
  Sender: FDA-Public Use
  Company Number: JP-ABBOTT-12P-087-0939746-00

PATIENT
  Sex: Female

DRUGS (2)
  1. HUMIRA [Suspect]
     Indication: RHEUMATOID ARTHRITIS
     Route: 058
     Dates: end: 20120605
  2. HUMIRA [Suspect]
     Route: 058
     Dates: start: 20120801

REACTIONS (1)
  - Mammogram abnormal [Unknown]
